FAERS Safety Report 18032436 (Version 2)
Quarter: 2020Q3

REPORT INFORMATION
  Report Type: Spontaneous
  Country: TW (occurrence: TW)
  Receive Date: 20200716
  Receipt Date: 20200723
  Transmission Date: 20201103
  Serious: Yes (Other)
  Sender: FDA-Public Use
  Company Number: TW-PFIZER INC-2020268801

PATIENT
  Age: 31 Year
  Sex: Female

DRUGS (6)
  1. IBRANCE [Suspect]
     Active Substance: PALBOCICLIB
     Indication: BREAST CANCER FEMALE
     Dosage: 125 MG, CYCLIC (ONCE A DAY, 21 DAYS, FOLLOWED BY 7 DAYS OFF, REPEAT EVERY 28 DAYS)
     Route: 048
     Dates: start: 20200303
  2. CALCITRIOL. [Concomitant]
     Active Substance: CALCITRIOL
     Dosage: 1 DF, 1X/DAY
     Route: 048
     Dates: start: 20200430
  3. LETROZOLE. [Concomitant]
     Active Substance: LETROZOLE
     Dosage: 2.5 MG, 1X/DAY
     Route: 048
     Dates: start: 20200227
  4. ZOLADEX [Concomitant]
     Active Substance: GOSERELIN ACETATE
     Dosage: 1 DF, STAT, Q4W
     Route: 058
     Dates: start: 20200227
  5. DENOSUMAB [Concomitant]
     Active Substance: DENOSUMAB
     Dosage: 120 MG STAT
     Route: 058
     Dates: start: 20200430
  6. CALCIUM CARBONATE. [Concomitant]
     Active Substance: CALCIUM CARBONATE
     Dosage: 1 DF, 3X/DAY
     Route: 048
     Dates: start: 20200430

REACTIONS (14)
  - Dyspnoea [Unknown]
  - Band neutrophil percentage increased [Unknown]
  - Neutropenia [Recovering/Resolving]
  - Transaminases increased [Recovering/Resolving]
  - Rash [Recovered/Resolved]
  - Blood bilirubin decreased [Unknown]
  - White blood cell count decreased [Unknown]
  - Insomnia [Recovered/Resolved]
  - Neoplasm progression [Unknown]
  - Neutrophil percentage increased [Unknown]
  - Pain in extremity [Recovering/Resolving]
  - Carcinoembryonic antigen increased [Unknown]
  - Arthralgia [Recovering/Resolving]
  - Pain [Recovering/Resolving]

NARRATIVE: CASE EVENT DATE: 2020
